FAERS Safety Report 8123654-5 (Version None)
Quarter: 2012Q1

REPORT INFORMATION
  Report Type: 
  Country: None (occurrence: None)
  Receive Date: 20120208
  Receipt Date: 20120205
  Transmission Date: 20120608
  Serious: Yes (Death, Other)
  Sender: FDA-Public Use
  Company Number: PHHY2012BR009602

PATIENT
  Sex: Female

DRUGS (1)
  1. EXELON [Suspect]
     Indication: MEMORY IMPAIRMENT
     Dosage: 4.6 MG, (9MG/5CM2 ONE ADHESIVE DAILY)
     Route: 062

REACTIONS (5)
  - POST PROCEDURAL INFECTION [None]
  - INAPPROPRIATE SCHEDULE OF DRUG ADMINISTRATION [None]
  - SEPTIC SHOCK [None]
  - FEMUR FRACTURE [None]
  - FALL [None]
